FAERS Safety Report 9387481 (Version 2)
Quarter: 2013Q3

REPORT INFORMATION
  Report Type: Spontaneous
  Country: US (occurrence: None)
  Receive Date: 20130702
  Receipt Date: 20130719
  Transmission Date: 20140515
  Serious: Yes (Other)
  Sender: FDA-Public Use
  Company Number: 2013P1010619

PATIENT
  Age: 49 Year
  Sex: Male

DRUGS (4)
  1. INFUMORPH [Suspect]
     Indication: PAIN
     Route: 037
     Dates: end: 20130617
  2. INFUMORPH [Suspect]
     Indication: PAIN
     Route: 037
     Dates: end: 20130617
  3. BACLOFEN [Suspect]
     Indication: PAIN
  4. BACLOFEN [Suspect]
     Indication: PAIN

REACTIONS (3)
  - Pain [None]
  - Device kink [None]
  - Incorrect dose administered by device [None]
